FAERS Safety Report 11087352 (Version 1)
Quarter: 2015Q2

REPORT INFORMATION
  Report Type: Spontaneous
  Country: US (occurrence: None)
  Receive Date: 20150501
  Receipt Date: 20150501
  Transmission Date: 20150821
  Serious: No
  Sender: FDA-Public Use
  Company Number: None

PATIENT
  Age: 52 Year
  Sex: Female

DRUGS (9)
  1. OMEPRAZOLE. [Concomitant]
     Active Substance: OMEPRAZOLE
  2. DILTIAZEM [Concomitant]
     Active Substance: DILTIAZEM
  3. METOLAZONE. [Concomitant]
     Active Substance: METOLAZONE
  4. KCI [Concomitant]
  5. PAROXETINE [Concomitant]
     Active Substance: PAROXETINE\PAROXETINE HYDROCHLORIDE
  6. ALBUTEROL HFA [Concomitant]
     Active Substance: ALBUTEROL SULFATE
  7. FUROSEMIDE. [Concomitant]
     Active Substance: FUROSEMIDE
  8. LETAIRIS [Suspect]
     Active Substance: AMBRISENTAN
     Indication: PULMONARY ARTERIAL HYPERTENSION
     Route: 048
     Dates: start: 20140830, end: 20140902
  9. TADALAFIL [Concomitant]
     Active Substance: TADALAFIL

REACTIONS (4)
  - Nausea [None]
  - Feeding disorder [None]
  - Epistaxis [None]
  - Peripheral swelling [None]

NARRATIVE: CASE EVENT DATE: 20140902
